FAERS Safety Report 11862484 (Version 1)
Quarter: 2015Q4

REPORT INFORMATION
  Report Type: Spontaneous
  Country: US (occurrence: None)
  Receive Date: 20151222
  Receipt Date: 20151222
  Transmission Date: 20160305
  Serious: Yes (Life-Threatening, Hospitalization, Disabling)
  Sender: FDA-Public Use
  Company Number: None

PATIENT
  Age: 69 Year
  Sex: Female
  Weight: 80.74 kg

DRUGS (14)
  1. VITAMIN B12 [Concomitant]
     Active Substance: CYANOCOBALAMIN
  2. VIT. D [Concomitant]
  3. SUPPLEMENT FOCUS FACTOR [Concomitant]
  4. SUPPL. SAM E [Concomitant]
  5. VITAMIN E [Concomitant]
     Active Substance: .ALPHA.-TOCOPHEROL
  6. LOSARTAN 25 MG COSTCO [Suspect]
     Active Substance: LOSARTAN
     Indication: HYPERTENSION
     Dosage: TAKEN BY MOUTH
     Dates: start: 20150201, end: 20151208
  7. SUPPL. L-CARNITINE [Concomitant]
  8. SUPPL. N-ACETYL [Concomitant]
  9. VITAMIN C [Concomitant]
     Active Substance: ASCORBIC ACID
  10. VIT. B6 [Concomitant]
  11. SUPPL. ACETYL [Concomitant]
  12. SUPPL. MOVE FREE ULTRA [Concomitant]
  13. SUPPL. RESERVATROL [Concomitant]
  14. SUPPL. CYSTEINE [Concomitant]

REACTIONS (5)
  - Musculoskeletal stiffness [None]
  - Muscle spasms [None]
  - Invasive ductal breast carcinoma [None]
  - Knee arthroplasty [None]
  - Hyperchromic anaemia [None]

NARRATIVE: CASE EVENT DATE: 20151027
